FAERS Safety Report 7327061-4 (Version None)
Quarter: 2011Q1

REPORT INFORMATION
  Report Type: 
  Country: None (occurrence: None)
  Receive Date: 20110302
  Receipt Date: 20110223
  Transmission Date: 20110831
  Serious: Yes (Other)
  Sender: FDA-Public Use
  Company Number: US-B.I. PHARMACEUTICALS,INC./RIDGEFIELD-2011-BP-05005BP

PATIENT
  Sex: Female

DRUGS (2)
  1. TOPROL-XL [Concomitant]
     Indication: HYPERTENSION
  2. PRADAXA [Suspect]
     Indication: ATRIAL FIBRILLATION
     Route: 048
     Dates: start: 20110208, end: 20110215

REACTIONS (3)
  - THROAT TIGHTNESS [None]
  - DIZZINESS [None]
  - DIARRHOEA [None]
